FAERS Safety Report 8100421-X (Version None)
Quarter: 2012Q1

REPORT INFORMATION
  Report Type: 
  Country: None (occurrence: None)
  Receive Date: 20120129
  Receipt Date: 20111129
  Transmission Date: 20120608
  Serious: No
  Sender: FDA-Public Use
  Company Number: US-ABBOTT-11P-163-0875045-00

PATIENT
  Sex: Female
  Weight: 59.02 kg

DRUGS (3)
  1. RELAFEN [Concomitant]
     Indication: PRODUCT USED FOR UNKNOWN INDICATION
  2. LIPITOR [Concomitant]
     Indication: BLOOD CHOLESTEROL INCREASED
  3. HUMIRA [Suspect]
     Indication: PSORIATIC ARTHROPATHY
     Dates: start: 20110309

REACTIONS (3)
  - NAUSEA [None]
  - INJECTION SITE PAIN [None]
  - NEEDLE ISSUE [None]
